FAERS Safety Report 14421383 (Version 1)
Quarter: 2018Q1

REPORT INFORMATION
  Report Type: Spontaneous
  Country: CL (occurrence: CL)
  Receive Date: 20180122
  Receipt Date: 20180122
  Transmission Date: 20180509
  Serious: Yes (Hospitalization)
  Sender: FDA-Public Use
  Company Number: CL-BIOMARINAP-CL-2018-116823

PATIENT
  Age: 20 Year
  Sex: Female
  Weight: 44 kg

DRUGS (1)
  1. ALDURAZYME [Suspect]
     Active Substance: LARONIDASE
     Indication: MUCOPOLYSACCHARIDOSIS I
     Dosage: 0.52 MG/KG, QW
     Route: 041
     Dates: start: 20080101

REACTIONS (16)
  - Nasal congestion [Unknown]
  - Rotavirus infection [Recovered/Resolved]
  - Breast pain [Unknown]
  - Nasopharyngitis [Not Recovered/Not Resolved]
  - Hypertension [Recovered/Resolved]
  - Bronchitis [Recovering/Resolving]
  - Depression [Not Recovered/Not Resolved]
  - Visual acuity reduced [Not Recovered/Not Resolved]
  - Sinusitis [Not Recovered/Not Resolved]
  - Abdominal pain [Unknown]
  - Cough [Unknown]
  - Nephrolithiasis [Recovered/Resolved]
  - Back pain [Recovered/Resolved]
  - Pyrexia [Unknown]
  - Breast mass [Not Recovered/Not Resolved]
  - Vomiting [Recovered/Resolved]

NARRATIVE: CASE EVENT DATE: 20170118
